FAERS Safety Report 8632028 (Version 2)
Quarter: 2012Q4

REPORT INFORMATION
  Report Type: Spontaneous
  Country: JP (occurrence: None)
  Receive Date: 20120611
  Receipt Date: 20120911
  Transmission Date: 20130627
  Serious: Yes (Death, Hospitalization)
  Sender: FDA-Public Use
  Company Number: DSA_57721_2012

PATIENT
  Age: 68 Year
  Sex: Male
  Weight: 50.5 kg

DRUGS (6)
  1. PEGAPTANIB SODIUM [Suspect]
     Indication: DIABETIC RETINAL OEDEMA
     Dosage: DF
  2. JANUVIA [Concomitant]
  3. DIFLUNISAL [Concomitant]
  4. ANTEBATE [Concomitant]
  5. HIRUDOID [Concomitant]
  6. LOCOID [Concomitant]

REACTIONS (1)
  - CARDIAC FAILURE [None]
